FAERS Safety Report 5855826-4 (Version None)
Quarter: 2008Q3

REPORT INFORMATION
  Report Type: 
  Country: None (occurrence: None)
  Receive Date: 20080825
  Receipt Date: 20071002
  Transmission Date: 20090109
  Serious: No
  Sender: FDA-Public Use
  Company Number: A0685641A

PATIENT
  Age: 77 Year
  Sex: Female

DRUGS (4)
  1. MALARONE [Suspect]
     Indication: MALARIA PROPHYLAXIS
     Dosage: 250MG PER DAY
     Route: 048
     Dates: end: 20070703
  2. NEXIUM [Concomitant]
  3. FOSAMAX [Concomitant]
  4. MOBIC [Concomitant]

REACTIONS (2)
  - ABNORMAL DREAMS [None]
  - MOUTH ULCERATION [None]
